FAERS Safety Report 16850772 (Version 1)
Quarter: 2019Q3

REPORT INFORMATION
  Report Type: Spontaneous
  Country: US (occurrence: US)
  Receive Date: 20190925
  Receipt Date: 20190925
  Transmission Date: 20191005
  Serious: No
  Sender: FDA-Public Use
  Company Number: US-THERAPEUTICSMD-2019TMD01748

PATIENT
  Age: 80 Year
  Sex: Female

DRUGS (1)
  1. IMVEXXY [Suspect]
     Active Substance: ESTRADIOL
     Indication: VULVOVAGINAL DRYNESS
     Dosage: UNK
     Route: 067

REACTIONS (5)
  - Vaginal haemorrhage [Recovered/Resolved]
  - Unevaluable event [Not Recovered/Not Resolved]
  - Vaginal discharge [Recovered/Resolved]
  - Nausea [Not Recovered/Not Resolved]
  - Off label use [Not Recovered/Not Resolved]

NARRATIVE: CASE EVENT DATE: 2019
